FAERS Safety Report 8832473 (Version 1)
Quarter: 2012Q4

REPORT INFORMATION
  Report Type: Spontaneous
  Country: US (occurrence: None)
  Receive Date: 20121009
  Receipt Date: 20121009
  Transmission Date: 20130627
  Serious: Yes (Other)
  Sender: FDA-Public Use
  Company Number: None

PATIENT
  Sex: Female
  Weight: 80.74 kg

DRUGS (1)
  1. MONTELUKAST SODIUM [Suspect]
     Indication: ASTHMA
     Dosage: one time a day
     Route: 048
     Dates: start: 20120911, end: 20120917

REACTIONS (4)
  - Pyrexia [None]
  - Acne [None]
  - Swelling [None]
  - Rash pruritic [None]
